FAERS Safety Report 19457076 (Version 1)
Quarter: 2021Q2

REPORT INFORMATION
  Report Type: Spontaneous
  Country: US (occurrence: US)
  Receive Date: 20210624
  Receipt Date: 20210624
  Transmission Date: 20210717
  Serious: Yes (Hospitalization, Other)
  Sender: FDA-Public Use
  Company Number: US-LUPIN PHARMACEUTICALS INC.-2021-09987

PATIENT
  Age: 76 Year
  Sex: Female

DRUGS (11)
  1. HYDROXYCHLOROQUINE [Suspect]
     Active Substance: HYDROXYCHLOROQUINE
     Indication: COVID-19
     Dosage: UNK
     Route: 065
     Dates: start: 20200328, end: 20200402
  2. IMMUNOGLOBULIN [Concomitant]
     Indication: IMMUNOSUPPRESSANT DRUG THERAPY
     Dosage: 500 MILLIGRAM/KILOGRAM
     Route: 065
     Dates: start: 20200304
  3. AZITHROMYCIN ANHYDROUS. [Suspect]
     Active Substance: AZITHROMYCIN ANHYDROUS
     Indication: COVID-19
     Dosage: UNK
     Route: 065
  4. MYCOPHENOLIC ACID. [Concomitant]
     Active Substance: MYCOPHENOLIC ACID
     Indication: IMMUNOSUPPRESSANT DRUG THERAPY
     Dosage: 360 MILLIGRAM (MAINTENANCE IMMUNOSUPPRESSION)
     Route: 065
     Dates: end: 20200407
  5. IMMUNOGLOBULIN [Concomitant]
     Dosage: STARTED AT SAME DOSE ON 19 MAY 2020
     Dates: start: 20200418, end: 20200419
  6. METHYLPREDNISOLONE. [Suspect]
     Active Substance: METHYLPREDNISOLONE
     Indication: IMMUNOSUPPRESSANT DRUG THERAPY
     Dosage: 500 MILLIGRAM (3 DAY COURSE)
     Route: 065
     Dates: start: 20200203, end: 20200205
  7. METHYLPREDNISOLONE. [Suspect]
     Active Substance: METHYLPREDNISOLONE
     Dosage: 125 MILLIGRAM (3 DAY COURSE)
     Route: 065
     Dates: start: 20200305, end: 20200307
  8. PREDNISONE. [Concomitant]
     Active Substance: PREDNISONE
     Indication: IMMUNOSUPPRESSANT DRUG THERAPY
     Dosage: UNK (5?10 MG; MAINTENANCE IMMUNOSUPPRESSION)
     Route: 065
  9. TACROLIMUS. [Concomitant]
     Active Substance: TACROLIMUS
     Indication: IMMUNOSUPPRESSANT DRUG THERAPY
     Dosage: UNK (TROUGH 6?8 NG/ML; MAINTENANCE IMMUNOSUPPRESSION)
     Route: 065
  10. METHYLPREDNISOLONE. [Suspect]
     Active Substance: METHYLPREDNISOLONE
     Dosage: 250 MILLIGRAM (3 DAY COURSE; 250 MG ON DAY 1; 125 MG ON DAY 2 AND DAY 3)
     Route: 065
     Dates: start: 20200227, end: 20200229
  11. ANTITHYMOCYTE IMMUNOGLOBULIN [Suspect]
     Active Substance: THYMOCYTE IMMUNE GLOBULIN NOS
     Indication: IMMUNOSUPPRESSANT DRUG THERAPY
     Dosage: 75 MILLIGRAM (3 DAY COURSE)
     Route: 065
     Dates: start: 20200305, end: 20200307

REACTIONS (3)
  - COVID-19 [Recovered/Resolved]
  - Off label use [Unknown]
  - Acute kidney injury [Recovering/Resolving]

NARRATIVE: CASE EVENT DATE: 20200321
